FAERS Safety Report 6917628-7 (Version None)
Quarter: 2010Q3

REPORT INFORMATION
  Report Type: 
  Country: None (occurrence: None)
  Receive Date: 20100810
  Receipt Date: 20100728
  Transmission Date: 20110219
  Serious: Yes (Other)
  Sender: FDA-Public Use
  Company Number: JP-PFIZER INC-2010094904

PATIENT
  Age: 60 Year
  Sex: Female

DRUGS (5)
  1. XALATAN [Suspect]
     Indication: OPEN ANGLE GLAUCOMA
     Route: 031
  2. TIMOLOL MALEATE [Suspect]
     Indication: OPEN ANGLE GLAUCOMA
     Route: 031
  3. DORZOLAMIDE HYDROCHLORIDE [Suspect]
     Indication: OPEN ANGLE GLAUCOMA
     Route: 047
  4. ACETAZOLAMIDE [Suspect]
     Indication: OPEN ANGLE GLAUCOMA
     Dosage: 500 MG, UNK
     Route: 048
  5. ASPIRIN [Suspect]
     Dosage: 100 MG, UNK
     Route: 048
     Dates: start: 20081129

REACTIONS (1)
  - CHOROIDAL HAEMORRHAGE [None]
